FAERS Safety Report 9331947 (Version 1)
Quarter: 2013Q2

REPORT INFORMATION
  Report Type: Spontaneous
  Country: US (occurrence: US)
  Receive Date: 20130605
  Receipt Date: 20130605
  Transmission Date: 20140414
  Serious: Yes (Hospitalization, Other)
  Sender: FDA-Public Use
  Company Number: CHPA2013US009355

PATIENT
  Age: 47 Year
  Sex: Female

DRUGS (1)
  1. VOLTAREN GEL [Suspect]
     Indication: PAIN IN EXTREMITY
     Dosage: 4 G, TID
     Route: 061
     Dates: start: 201205, end: 201210

REACTIONS (7)
  - Thrombosis [Recovered/Resolved]
  - Pulmonary embolism [Recovered/Resolved]
  - Intracardiac thrombus [Recovered/Resolved]
  - Deep vein thrombosis [Recovering/Resolving]
  - Dyspnoea [Recovered/Resolved]
  - Exostosis [Recovered/Resolved]
  - Off label use [Unknown]
